FAERS Safety Report 20021292 (Version 1)
Quarter: 2021Q4

REPORT INFORMATION
  Report Type: Spontaneous
  Country: GB (occurrence: GB)
  Receive Date: 20211101
  Receipt Date: 20211101
  Transmission Date: 20220304
  Serious: Yes (Other)
  Sender: FDA-Public Use
  Company Number: GB-MLMSERVICE-20211019-3163484-1

PATIENT
  Age: 46 Year
  Sex: Female

DRUGS (1)
  1. PRAMIPEXOLE [Suspect]
     Active Substance: PRAMIPEXOLE
     Indication: Parkinsonism
     Dates: start: 2012

REACTIONS (2)
  - Hallucination, visual [Unknown]
  - Somnolence [Unknown]

NARRATIVE: CASE EVENT DATE: 20120101
